FAERS Safety Report 15070165 (Version 1)
Quarter: 2018Q2

REPORT INFORMATION
  Report Type: Report from Study
  Country: US (occurrence: US)
  Receive Date: 20180626
  Receipt Date: 20180626
  Transmission Date: 20180711
  Serious: Yes (Hospitalization, Other)
  Sender: FDA-Public Use
  Company Number: US-GILEAD-2018-0341591

PATIENT
  Age: 10 Year
  Sex: Male
  Weight: 21.1 kg

DRUGS (18)
  1. AZTREONAM LYSINE [Suspect]
     Active Substance: AZTREONAM LYSINE
     Indication: PSEUDOMONAS INFECTION
     Dosage: 75 MG, TID
     Route: 055
     Dates: start: 20180529
  2. TOBRAMYCIN. [Suspect]
     Active Substance: TOBRAMYCIN
     Indication: PSEUDOMONAS INFECTION
     Dosage: UNKNOWN, 28 DAYS ON, 28 DAYS OFF, ALTERNATES WITH CAYSTON
     Route: 065
     Dates: start: 201804, end: 20180522
  3. ALBUTEROL SULFATE. [Concomitant]
     Active Substance: ALBUTEROL SULFATE
     Indication: WHEEZING
     Dosage: 1 DF, 3-4X/DAY, PRN
     Route: 055
     Dates: start: 20171214
  4. ALBUTEROL SULFATE. [Concomitant]
     Active Substance: ALBUTEROL SULFATE
     Indication: DYSPNOEA
  5. AQUADEKS                           /07679501/ [Concomitant]
     Active Substance: MINERALS\VITAMINS
     Dosage: 1 DF, QD
     Route: 048
     Dates: start: 20170614
  6. PULMOZYME [Concomitant]
     Active Substance: DORNASE ALFA
     Dosage: 1 MG/ML (1 AMPULE 2.5 ML), QD
     Route: 055
     Dates: start: 20171214
  7. PROAIR HFA [Concomitant]
     Active Substance: ALBUTEROL SULFATE
     Indication: DYSPNOEA
  8. TOBRAMYCIN. [Suspect]
     Active Substance: TOBRAMYCIN
     Dosage: 300 MG/5 ML, BID 28 DAYS ON, 28 DAYS OFF, ALTERNATES WITH CAYSTON
     Route: 055
     Dates: start: 20171214
  9. ALBUTEROL SULFATE. [Concomitant]
     Active Substance: ALBUTEROL SULFATE
     Indication: COUGH
     Dosage: 1 DF, BID
     Route: 055
     Dates: start: 20171214
  10. PROAIR HFA [Concomitant]
     Active Substance: ALBUTEROL SULFATE
     Indication: WHEEZING
     Dosage: 90 UG, 2-4 PUFFS Q2-4 HOURS, PRN
     Route: 055
     Dates: start: 20171214
  11. HYPERSAL [Concomitant]
     Indication: COUGH
     Dosage: 7 % 1 VIAL (4 ML), BID
     Route: 055
     Dates: start: 20171214
  12. MVW COMPLETE FORMULATION D5000 [Concomitant]
     Dosage: 1 DF, QD WITH MEALS
     Route: 048
     Dates: start: 20171214
  13. OMEPRAZOLE. [Concomitant]
     Active Substance: OMEPRAZOLE
     Dosage: 20 MG, QD 30 MINUTES BEFORE BREAKFAST
     Route: 048
     Dates: start: 20171214
  14. AZTREONAM LYSINE [Suspect]
     Active Substance: AZTREONAM LYSINE
     Indication: CYSTIC FIBROSIS
     Dosage: 75 MG, TID, 28 DAYS ON, 28 DAYS OFF, ALTERNATES WITH TOBRAMYCIN
     Route: 055
     Dates: start: 201804, end: 20180522
  15. FERROUSUL [Concomitant]
     Dosage: 325 MG (65 MG IRON), QD
     Route: 048
     Dates: start: 20171214
  16. PROAIR HFA [Concomitant]
     Active Substance: ALBUTEROL SULFATE
     Indication: COUGH
     Dosage: 90 UG, 2-4 PUFFS BID
     Route: 055
     Dates: start: 20171214
  17. HYPERSAL [Concomitant]
     Indication: LOWER RESPIRATORY TRACT CONGESTION
     Dosage: 7 % 1 VIAL (4 ML), 3-4X/DAY PRN
     Route: 055
     Dates: start: 20171214
  18. VITAMIN D3 [Concomitant]
     Active Substance: CHOLECALCIFEROL
     Dosage: 5000 IU, QD
     Route: 048
     Dates: start: 20171214

REACTIONS (5)
  - Pseudomonas infection [Unknown]
  - Malaise [Not Recovered/Not Resolved]
  - Productive cough [Not Recovered/Not Resolved]
  - Ill-defined disorder [Unknown]
  - Oxygen saturation decreased [Not Recovered/Not Resolved]

NARRATIVE: CASE EVENT DATE: 20180523
